FAERS Safety Report 9369711 (Version 1)
Quarter: 2013Q2

REPORT INFORMATION
  Report Type: Spontaneous
  Country: US (occurrence: US)
  Receive Date: 20130626
  Receipt Date: 20130626
  Transmission Date: 20140414
  Serious: No
  Sender: FDA-Public Use
  Company Number: US-MYLANLABS-2013S1001508

PATIENT
  Age: 61 Year
  Sex: Female
  Weight: 90.72 kg

DRUGS (3)
  1. OMEPRAZOLE DELAYED-RELEASE CAPSULES, USP [Suspect]
     Indication: GASTRITIS
     Route: 048
     Dates: start: 20121022, end: 20121224
  2. OMEPRAZOLE DELAYED-RELEASE CAPSULES, USP [Suspect]
     Indication: OFF LABEL USE
     Route: 048
     Dates: start: 20121022, end: 20121224
  3. ALLOPURINOL [Concomitant]
     Indication: GOUT

REACTIONS (1)
  - Drug eruption [Recovering/Resolving]
